FAERS Safety Report 15548438 (Version 1)
Quarter: 2018Q4

REPORT INFORMATION
  Report Type: Spontaneous
  Country: US (occurrence: US)
  Receive Date: 20181025
  Receipt Date: 20181025
  Transmission Date: 20190205
  Serious: No
  Sender: FDA-Public Use
  Company Number: US-ELI_LILLY_AND_COMPANY-US201810010260

PATIENT
  Age: 68 Year
  Sex: Female

DRUGS (5)
  1. BASAGLAR [Suspect]
     Active Substance: INSULIN GLARGINE
     Indication: DIABETES MELLITUS
     Dosage: 110 U, EACH EVENING (NIGHT)
     Route: 058
     Dates: start: 2018
  2. NOVOLOG [Concomitant]
     Active Substance: INSULIN ASPART
     Dosage: 30 U, DAILY (LUNCH)
  3. BASAGLAR [Suspect]
     Active Substance: INSULIN GLARGINE
     Dosage: 110 U, EACH EVENING (NIGHT)
     Route: 058
  4. NOVOLOG [Concomitant]
     Active Substance: INSULIN ASPART
     Indication: DIABETES MELLITUS
     Dosage: 25 U, EACH MORNING
  5. NOVOLOG [Concomitant]
     Active Substance: INSULIN ASPART
     Dosage: 20 U, EACH EVENING (BEDTIME)

REACTIONS (1)
  - Nasopharyngitis [Recovering/Resolving]

NARRATIVE: CASE EVENT DATE: 20181018
